FAERS Safety Report 18182225 (Version 6)
Quarter: 2021Q1

REPORT INFORMATION
  Report Type: Spontaneous
  Country: US (occurrence: US)
  Receive Date: 20200821
  Receipt Date: 20210121
  Transmission Date: 20210419
  Serious: No
  Sender: FDA-Public Use
  Company Number: US-PFIZER INC-2018435802

PATIENT
  Age: 15 Year
  Sex: Male
  Weight: 43.09 kg

DRUGS (6)
  1. PROZAC [Concomitant]
     Active Substance: FLUOXETINE HYDROCHLORIDE
     Indication: DEPRESSION
     Dosage: 40 MG, DAILY
     Dates: start: 2017
  2. CONCERTA [Concomitant]
     Active Substance: METHYLPHENIDATE HYDROCHLORIDE
     Dosage: 54 MG
  3. GENOTROPIN [Suspect]
     Active Substance: SOMATROPIN
     Dosage: 1.8 MG, DAILY (1.8MG INJECTION DAILY)
     Dates: start: 2017
  4. METHYLPHENIDATE. [Concomitant]
     Active Substance: METHYLPHENIDATE
     Indication: ATTENTION DEFICIT HYPERACTIVITY DISORDER
     Dosage: 54 MG, DAILY
     Dates: start: 2015
  5. GENOTROPIN [Suspect]
     Active Substance: SOMATROPIN
     Indication: GROWTH HORMONE DEFICIENCY
     Dosage: 1.6 MG, DAILY
     Dates: start: 20170608
  6. CYPROHEPTADINE. [Concomitant]
     Active Substance: CYPROHEPTADINE
     Indication: DECREASED APPETITE
     Dosage: 8 MG, DAILY
     Dates: start: 2017

REACTIONS (6)
  - Poor quality device used [Unknown]
  - Device issue [Unknown]
  - Device use issue [Unknown]
  - Device breakage [Unknown]
  - Product dose omission issue [Unknown]
  - Device use error [Unknown]

NARRATIVE: CASE EVENT DATE: 2019
